FAERS Safety Report 13900384 (Version 2)
Quarter: 2017Q3

REPORT INFORMATION
  Report Type: Report from Study
  Country: IN (occurrence: IN)
  Receive Date: 20170823
  Receipt Date: 20170831
  Transmission Date: 20171127
  Serious: Yes (Death, Hospitalization, Other)
  Sender: FDA-Public Use
  Company Number: IN-MYLANLABS-2017M1052271

PATIENT
  Age: 65 Year
  Sex: Female

DRUGS (1)
  1. METHOTREXATE. [Suspect]
     Active Substance: METHOTREXATE
     Indication: RHEUMATOID ARTHRITIS
     Dosage: FOR 60 MONTHS
     Route: 048

REACTIONS (4)
  - Gastrointestinal infection [Fatal]
  - Pancytopenia [Fatal]
  - Cryptosporidiosis infection [Fatal]
  - Incorrect dosage administered [Fatal]
